FAERS Safety Report 6586534-2 (Version None)
Quarter: 2010Q1

REPORT INFORMATION
  Report Type: 
  Country: None (occurrence: None)
  Receive Date: 20100217
  Receipt Date: 20090319
  Transmission Date: 20100710
  Serious: No
  Sender: FDA-Public Use
  Company Number: US-ALLERGAN-0903692US

PATIENT
  Age: 45 Year
  Sex: Female

DRUGS (2)
  1. BOTOX COSMETIC [Suspect]
     Indication: SKIN WRINKLING
     Dosage: 40 UNITS, SINGLE
     Route: 030
     Dates: start: 20090225, end: 20090225
  2. BOTOX COSMETIC [Suspect]
     Dosage: 7.5 UNITS, SINGLE
     Route: 030
     Dates: start: 20090304, end: 20090304

REACTIONS (3)
  - HEADACHE [None]
  - NAUSEA [None]
  - SENSATION OF PRESSURE [None]
